FAERS Safety Report 10142443 (Version 1)
Quarter: 2014Q2

REPORT INFORMATION
  Report Type: Report from Study
  Country: KR (occurrence: KR)
  Receive Date: 20140430
  Receipt Date: 20140430
  Transmission Date: 20141212
  Serious: Yes (Hospitalization)
  Sender: FDA-Public Use
  Company Number: KR-ROCHE-1388100

PATIENT
  Sex: Male

DRUGS (13)
  1. TOCILIZUMAB [Suspect]
     Indication: RHEUMATOID ARTHRITIS
     Route: 042
     Dates: start: 20130916
  2. TOCILIZUMAB [Suspect]
     Indication: RHEUMATOID ARTHRITIS
     Route: 042
     Dates: start: 20131010
  3. TOCILIZUMAB [Suspect]
     Indication: RHEUMATOID ARTHRITIS
     Route: 042
     Dates: start: 20131107
  4. HYDROXYCHLOROQUINE [Concomitant]
     Indication: RHEUMATOID ARTHRITIS
     Route: 065
     Dates: start: 20100419
  5. SOLONDO [Concomitant]
     Indication: RHEUMATOID ARTHRITIS
     Route: 065
     Dates: start: 20130321, end: 20131106
  6. SOLONDO [Concomitant]
     Indication: RHEUMATOID ARTHRITIS
     Route: 065
     Dates: start: 20131107
  7. DIABEX [Concomitant]
     Indication: DIABETES MELLITUS
     Route: 065
     Dates: start: 20111020, end: 20140123
  8. DIABEX [Concomitant]
     Indication: DIABETES MELLITUS
     Route: 065
     Dates: start: 20140307, end: 20140321
  9. DIABEX [Concomitant]
     Indication: DIABETES MELLITUS
     Route: 065
     Dates: start: 20140403
  10. GLIMEL [Concomitant]
     Indication: DIABETES MELLITUS
     Route: 065
     Dates: start: 20130321, end: 20140123
  11. AMLODIPINE OROTATE [Concomitant]
     Indication: HYPERTENSION
     Route: 065
     Dates: start: 20091228, end: 20140309
  12. AMLODIPINE OROTATE [Concomitant]
     Indication: HYPERTENSION
     Route: 065
     Dates: start: 20140310, end: 20140410
  13. AMLODIPINE OROTATE [Concomitant]
     Indication: HYPERTENSION
     Route: 065
     Dates: start: 20140311

REACTIONS (2)
  - Gastrointestinal haemorrhage [Recovered/Resolved]
  - Spinal column stenosis [Recovering/Resolving]
